FAERS Safety Report 7112236-X (Version None)
Quarter: 2010Q4

REPORT INFORMATION
  Report Type: 
  Country: None (occurrence: None)
  Receive Date: 20101119
  Receipt Date: 20100413
  Transmission Date: 20110411
  Serious: No
  Sender: FDA-Public Use
  Company Number: A0854814A

PATIENT
  Sex: Male

DRUGS (2)
  1. AVODART [Suspect]
     Route: 048
  2. UNKNOWN [Concomitant]

REACTIONS (1)
  - GYNAECOMASTIA [None]
